FAERS Safety Report 21879468 (Version 1)
Quarter: 2023Q1

REPORT INFORMATION
  Report Type: Spontaneous
  Country: TW (occurrence: TW)
  Receive Date: 20230118
  Receipt Date: 20230118
  Transmission Date: 20230418
  Serious: Yes (Other)
  Sender: FDA-Public Use
  Company Number: TW-TAKEDA-2023TUS004079

PATIENT
  Age: 66 Year
  Sex: Female

DRUGS (2)
  1. BRIGATINIB [Suspect]
     Active Substance: BRIGATINIB
     Indication: Non-small cell lung cancer
     Dosage: 90 MILLIGRAM, QD
     Route: 065
     Dates: end: 202201
  2. BRIGATINIB [Suspect]
     Active Substance: BRIGATINIB
     Indication: EGFR gene mutation

REACTIONS (3)
  - Myositis [Unknown]
  - Blood creatine phosphokinase increased [Unknown]
  - Off label use [Unknown]
